FAERS Safety Report 15985212 (Version 1)
Quarter: 2019Q1

REPORT INFORMATION
  Report Type: Spontaneous
  Country: JP (occurrence: JP)
  Receive Date: 20190220
  Receipt Date: 20190220
  Transmission Date: 20190418
  Serious: Yes (Death)
  Sender: FDA-Public Use
  Company Number: JP-PANACEA BIOTEC LTD-2019-JP-000020

PATIENT
  Age: 47 Year
  Sex: Male

DRUGS (6)
  1. GARENOXACIN [Concomitant]
     Active Substance: GARENOXACIN
     Indication: COUGH
     Dosage: PER DAY
     Route: 065
  2. AZITHROMYCIN ANHYDROUS. [Concomitant]
     Active Substance: AZITHROMYCIN ANHYDROUS
     Indication: COUGH
     Dosage: PER DAY
     Route: 065
  3. METHYLPREDNISOLONE. [Suspect]
     Active Substance: METHYLPREDNISOLONE
     Indication: ACUTE RESPIRATORY FAILURE
     Dosage: PER DAY
     Route: 042
  4. PREDNISOLONE. [Suspect]
     Active Substance: PREDNISOLONE
     Indication: ACUTE RESPIRATORY FAILURE
     Dosage: 50 MG/DAY (0.75 MG/KG BODYWEIGHT)
     Route: 065
  5. TACROLIMUS. [Suspect]
     Active Substance: TACROLIMUS
     Indication: INTERSTITIAL LUNG DISEASE
     Dosage: PER DAY
     Route: 048
  6. CYCLOPHOSPHAMIDE. [Suspect]
     Active Substance: CYCLOPHOSPHAMIDE
     Indication: PRODUCT USED FOR UNKNOWN INDICATION
     Dosage: 500 MG/BODY
     Route: 042

REACTIONS (4)
  - Pneumothorax [Fatal]
  - Pneumomediastinum [Fatal]
  - Product use in unapproved indication [Unknown]
  - Condition aggravated [Fatal]
